FAERS Safety Report 20583105 (Version 2)
Quarter: 2022Q2

REPORT INFORMATION
  Report Type: Spontaneous
  Country: US (occurrence: US)
  Receive Date: 20220311
  Receipt Date: 20220416
  Transmission Date: 20220720
  Serious: Yes (Other)
  Sender: FDA-Public Use
  Company Number: US-AMGEN-USASP2022037585

PATIENT
  Age: 74 Year
  Sex: Female
  Weight: 60.771 kg

DRUGS (1)
  1. PROLIA [Suspect]
     Active Substance: DENOSUMAB
     Indication: Osteoporosis
     Dosage: 60 MILLIGRAM, Q6MO
     Route: 065
     Dates: start: 20220225

REACTIONS (10)
  - Coma [Unknown]
  - Accidental exposure to product [Unknown]
  - Product administered at inappropriate site [Unknown]
  - Wrong technique in product usage process [Unknown]
  - Illness [Recovering/Resolving]
  - Weight decreased [Recovering/Resolving]
  - Cystitis [Unknown]
  - Asthenia [Not Recovered/Not Resolved]
  - Product administered by wrong person [Unknown]
  - Underdose [Unknown]

NARRATIVE: CASE EVENT DATE: 20220225
